FAERS Safety Report 8114998-1 (Version None)
Quarter: 2012Q1

REPORT INFORMATION
  Report Type: 
  Country: None (occurrence: None)
  Receive Date: 20120206
  Receipt Date: 20120126
  Transmission Date: 20120608
  Serious: Yes (Other)
  Sender: FDA-Public Use
  Company Number: US-BRISTOL-MYERS SQUIBB COMPANY-15811821

PATIENT
  Age: 55 Year
  Sex: Male

DRUGS (22)
  1. FLUTICASONE PROPIONATE [Concomitant]
     Indication: RHINITIS ALLERGIC
     Route: 045
  2. ASPIRIN [Concomitant]
  3. DOCUSATE [Concomitant]
     Indication: CONSTIPATION
     Route: 048
  4. MAGNESIUM OXIDE [Concomitant]
     Route: 048
  5. BLINDED: SAXAGLIPTIN [Suspect]
     Indication: TYPE 2 DIABETES MELLITUS
     Dates: start: 20100716
  6. IBUPROFEN [Concomitant]
     Indication: HEADACHE
     Route: 048
  7. FAMOTIDINE [Concomitant]
     Indication: GASTROOESOPHAGEAL REFLUX DISEASE
     Route: 048
  8. INSULIN ASPART [Suspect]
     Indication: DIABETES MELLITUS
  9. DIAZEPAM [Concomitant]
     Indication: ANXIETY
     Route: 048
  10. AUGMENTIN '125' [Concomitant]
     Indication: SINUSITIS
     Route: 048
  11. CALCITRIOL [Concomitant]
     Indication: HYPERPARATHYROIDISM
     Route: 048
  12. ERGOCALCIFEROL [Concomitant]
     Indication: VITAMIN D DEFICIENCY
     Route: 048
  13. CETIRIZINE [Concomitant]
     Indication: RHINITIS ALLERGIC
     Route: 048
  14. SANTYL [Concomitant]
     Indication: DIABETIC FOOT
  15. AMMONIUM LACTATE [Concomitant]
     Indication: DRY SKIN
  16. PLACEBO [Suspect]
     Indication: TYPE 2 DIABETES MELLITUS
     Dates: start: 20100716
  17. BACTRIM DS [Concomitant]
     Indication: SINUSITIS
     Route: 048
  18. PSYLLIUM [Concomitant]
     Indication: CONSTIPATION
     Route: 048
  19. INSULIN GLARGINE [Suspect]
     Indication: DIABETES MELLITUS
  20. LACTULOSE [Concomitant]
     Indication: CONSTIPATION
     Route: 048
  21. TACROLIMUS [Concomitant]
     Indication: LIVER TRANSPLANT
     Route: 048
  22. ZOLPIDEM [Concomitant]
     Indication: INSOMNIA
     Route: 048

REACTIONS (1)
  - HERPES ZOSTER INFECTION NEUROLOGICAL [None]
